FAERS Safety Report 21148671 (Version 1)
Quarter: 2022Q3

REPORT INFORMATION
  Report Type: Report from Study
  Country: AU (occurrence: AU)
  Receive Date: 20220729
  Receipt Date: 20220729
  Transmission Date: 20221027
  Serious: Yes (Other)
  Sender: FDA-Public Use
  Company Number: AU-KOREA IPSEN Pharma-2022-21443

PATIENT
  Age: 31 Year
  Sex: Male

DRUGS (1)
  1. LANREOTIDE ACETATE [Suspect]
     Active Substance: LANREOTIDE ACETATE
     Indication: Acromegaly
     Dosage: 60MG
     Route: 058
     Dates: start: 202205

REACTIONS (3)
  - Diarrhoea [Recovered/Resolved with Sequelae]
  - Decreased appetite [Recovered/Resolved with Sequelae]
  - Weight decreased [Recovered/Resolved with Sequelae]

NARRATIVE: CASE EVENT DATE: 20220501
